FAERS Safety Report 8057474-7 (Version None)
Quarter: 2012Q1

REPORT INFORMATION
  Report Type: 
  Country: None (occurrence: None)
  Receive Date: 20120119
  Receipt Date: 20120113
  Transmission Date: 20120608
  Serious: Yes (Hospitalization)
  Sender: FDA-Public Use
  Company Number: JP-MERCK-1112USA01120

PATIENT
  Age: 57 Year
  Sex: Male
  Weight: 60 kg

DRUGS (4)
  1. FOIPAN [Concomitant]
     Indication: PANCREATITIS CHRONIC
     Dosage: DAILY DOSAGE UNKNOWN
     Route: 048
     Dates: start: 20081129, end: 20111219
  2. ALLOPURINOL [Concomitant]
     Indication: HYPERURICAEMIA
     Route: 048
     Dates: start: 20081129, end: 20111219
  3. JANUVIA [Suspect]
     Indication: DIABETES MELLITUS
     Route: 048
     Dates: start: 20110613, end: 20111128
  4. RABEPRAZOLE SODIUM [Concomitant]
     Indication: GASTROOESOPHAGEAL REFLUX DISEASE
     Route: 048
     Dates: start: 20081129, end: 20111219

REACTIONS (1)
  - INTERSTITIAL LUNG DISEASE [None]
